FAERS Safety Report 8925255 (Version 1)
Quarter: 2012Q4

REPORT INFORMATION
  Report Type: 
  Country: GB (occurrence: GB)
  Receive Date: 20121126
  Receipt Date: 20121126
  Transmission Date: 20130627
  Serious: Yes (Other)
  Sender: FDA-Public Use
  Company Number: GB-ASTRAZENECA-2012SE86156

PATIENT
  Age: 20454 Day
  Sex: Female

DRUGS (1)
  1. FASLODEX [Suspect]
     Route: 030
     Dates: start: 20121003, end: 20121017

REACTIONS (4)
  - Contusion [Recovering/Resolving]
  - Swelling [Recovering/Resolving]
  - Injection site pain [Recovering/Resolving]
  - Erythema [Recovering/Resolving]
